FAERS Safety Report 12889117 (Version 1)
Quarter: 2016Q4

REPORT INFORMATION
  Report Type: Spontaneous
  Country: US (occurrence: US)
  Receive Date: 20161027
  Receipt Date: 20161027
  Transmission Date: 20170207
  Serious: No
  Sender: FDA-Public Use
  Company Number: US-PRESTIGE BRANDS -1058945

PATIENT
  Age: 22 Year
  Sex: Female

DRUGS (1)
  1. MONISTAT 7 [Suspect]
     Active Substance: MICONAZOLE NITRATE
     Indication: VULVOVAGINAL MYCOTIC INFECTION
     Route: 067
     Dates: start: 20160131, end: 20160201

REACTIONS (3)
  - Vaginal haemorrhage [Recovered/Resolved]
  - Vaginal haemorrhage [Not Recovered/Not Resolved]
  - Muscle spasms [Recovered/Resolved]

NARRATIVE: CASE EVENT DATE: 20160201
